FAERS Safety Report 10527602 (Version 1)
Quarter: 2014Q4

REPORT INFORMATION
  Report Type: Spontaneous
  Country: US (occurrence: None)
  Receive Date: 20141017
  Receipt Date: 20141017
  Transmission Date: 20150528
  Serious: Yes (Hospitalization)
  Sender: FDA-Public Use
  Company Number: None

PATIENT
  Age: 76 Year
  Sex: Male
  Weight: 76.1 kg

DRUGS (2)
  1. ASPIRIN. [Suspect]
     Active Substance: ASPIRIN
     Indication: PAIN
     Route: 048
     Dates: start: 20140616, end: 20140812
  2. ASPIRIN. [Suspect]
     Active Substance: ASPIRIN
     Indication: INTERMITTENT CLAUDICATION
     Route: 048
     Dates: start: 20140616, end: 20140812

REACTIONS (6)
  - Anaemia [None]
  - Hyperhidrosis [None]
  - Dizziness [None]
  - Gastric haemorrhage [None]
  - Gastritis [None]
  - Nausea [None]

NARRATIVE: CASE EVENT DATE: 20140810
